FAERS Safety Report 7018313-6 (Version None)
Quarter: 2010Q3

REPORT INFORMATION
  Report Type: 
  Country: None (occurrence: None)
  Receive Date: 20100927
  Receipt Date: 20100927
  Transmission Date: 20110219
  Serious: Yes (Other)
  Sender: FDA-Public Use
  Company Number: None

PATIENT
  Sex: Male
  Weight: 156.9446 kg

DRUGS (8)
  1. ENOXAPARIN SODIUM [Suspect]
     Indication: PULMONARY EMBOLISM
     Dosage: 150MG Q12H SQ
     Route: 058
     Dates: start: 20100911, end: 20100913
  2. ENOXAPARIN SODIUM [Suspect]
     Indication: PULMONARY EMBOLISM
     Dosage: 150MG Q12H SQ
     Route: 058
     Dates: start: 20100915, end: 20100917
  3. TRAMADOL HCL [Concomitant]
  4. WARFARIN SODIUM [Concomitant]
  5. TYLENOL TABS - ACETA,OMPHEN TABS [Concomitant]
  6. KEFLEX [Concomitant]
  7. LORCET -HYDROCODONE-ACETAMINOPHEN TABS [Concomitant]
  8. PYRIDIUM - PHENAZOPYRIDINE HCL [Concomitant]

REACTIONS (4)
  - CONTUSION [None]
  - PRODUCT SUBSTITUTION ISSUE [None]
  - PRURITUS [None]
  - SWELLING [None]
